FAERS Safety Report 4510601-8 (Version None)
Quarter: 2004Q4

REPORT INFORMATION
  Report Type: 
  Country: None (occurrence: None)
  Receive Date: 20041124
  Receipt Date: 20040323
  Transmission Date: 20050328
  Serious: Yes (Hospitalization)
  Sender: FDA-Public Use
  Company Number: US-ABBOTT-04P-163-0254501-00

PATIENT
  Sex: Male

DRUGS (26)
  1. RITONAVIR SOFT GELATIN CAPSULES [Suspect]
     Indication: HIV INFECTION
     Route: 048
     Dates: start: 20030708, end: 20040312
  2. DIDANOSINE [Concomitant]
     Indication: HIV INFECTION
     Route: 048
     Dates: start: 20030708
  3. LAMIVUDINE [Concomitant]
     Indication: HIV INFECTION
     Route: 048
     Dates: start: 20030708
  4. TENOFOVIR [Concomitant]
     Indication: HIV INFECTION
     Route: 048
     Dates: start: 20030708
  5. TESTOSTERONE [Concomitant]
     Indication: DRUG USE FOR UNKNOWN INDICATION
     Dates: start: 20030103, end: 20040309
  6. BUPROPION HYDROCHLORIDE [Concomitant]
     Indication: DEPRESSION
     Dates: start: 20000601
  7. METHYLPHENIDATE HCL [Concomitant]
     Indication: ATTENTION DEFICIT/HYPERACTIVITY DISORDER
     Dates: start: 20010501, end: 20040308
  8. BACTRIM [Concomitant]
     Indication: PROPHYLAXIS
     Dates: start: 19920101
  9. SOMATROPIN [Concomitant]
     Indication: CACHEXIA
     Dates: start: 19980101, end: 20040309
  10. ANDRODERM [Concomitant]
     Indication: LIBIDO DECREASED
     Dates: start: 20010501, end: 20040309
  11. GLUCOSAMINE W/CHONDROITIN SULFATES [Concomitant]
     Indication: ARTHRALGIA
     Dates: start: 20000601, end: 20040309
  12. TIPRANAVIR [Concomitant]
     Indication: HIV INFECTION
     Dates: start: 20030708, end: 20040312
  13. ACYCLOVIR [Concomitant]
     Indication: HERPES SIMPLEX
     Dates: start: 20030103
  14. IBUPROFEN [Concomitant]
     Indication: BACK PAIN
     Dates: start: 20010601, end: 20040309
  15. CLOBETASOL PROPIONATE [Concomitant]
     Indication: ARTHROPOD BITE
     Dates: start: 20040206, end: 20040225
  16. L-ARGININE [Concomitant]
     Indication: NUTRITIONAL SUPPORT
     Dates: start: 20031215, end: 20040309
  17. L-CARNITINE [Concomitant]
     Indication: NUTRITIONAL SUPPORT
     Dates: start: 20031215, end: 20040309
  18. TOCOPHEROL CONCENTRATE CAP [Concomitant]
     Indication: NUTRITIONAL SUPPORT
     Dates: start: 20000601, end: 20040309
  19. MULTI-VITAMINS [Concomitant]
     Indication: NUTRITIONAL SUPPORT
     Dates: start: 19920101, end: 20040309
  20. LYSINE [Concomitant]
     Indication: HERPES SIMPLEX
     Dates: start: 20000601, end: 20040309
  21. B-KOMPLEX ^LECIVA^ [Concomitant]
     Indication: NUTRITIONAL SUPPORT
     Dates: start: 20000601, end: 20040309
  22. ASCORBIC ACID [Concomitant]
     Indication: NUTRITIONAL SUPPORT
     Dates: start: 20021001, end: 20040309
  23. CHINESE HERBS [Concomitant]
     Indication: NUTRITIONAL SUPPORT
  24. PRASTERONE [Concomitant]
     Indication: NUTRITIONAL SUPPORT
     Dates: start: 20020601, end: 20040309
  25. ZINC PICOLINATE [Concomitant]
     Dates: start: 20010601, end: 20040309
  26. DAPSONE [Concomitant]
     Indication: INFECTION PROPHYLAXIS
     Dates: start: 20031201, end: 20040309

REACTIONS (12)
  - BLOOD LACTATE DEHYDROGENASE INCREASED [None]
  - BRONCHIOLITIS [None]
  - CONFUSIONAL STATE [None]
  - DELUSION [None]
  - GRANULOMA [None]
  - INTERSTITIAL LUNG DISEASE [None]
  - LEUKOPENIA [None]
  - LYMPHOCYTOSIS [None]
  - NECROSIS [None]
  - TRANSAMINASES INCREASED [None]
  - VISION BLURRED [None]
  - WEIGHT DECREASED [None]
